FAERS Safety Report 13955797 (Version 3)
Quarter: 2018Q1

REPORT INFORMATION
  Report Type: Spontaneous
  Country: US (occurrence: US)
  Receive Date: 20170911
  Receipt Date: 20180125
  Transmission Date: 20180508
  Serious: Yes (Hospitalization, Other)
  Sender: FDA-Public Use
  Company Number: US-DSJP-DSU-2017-136224

PATIENT

DRUGS (2)
  1. BENICAR HCT [Suspect]
     Active Substance: HYDROCHLOROTHIAZIDE\OLMESARTAN MEDOXOMIL
     Indication: HYPERTENSION
     Dosage: 40-12.5 MG, QD
     Route: 048
     Dates: start: 20100928, end: 20140610
  2. BENICAR [Suspect]
     Active Substance: OLMESARTAN MEDOXOMIL
     Indication: HYPERTENSION
     Dosage: 40 MG, UNK
     Dates: start: 20140610, end: 20171004

REACTIONS (11)
  - Acute kidney injury [Recovered/Resolved]
  - Gastrooesophageal reflux disease [Unknown]
  - Oesophageal stenosis [Unknown]
  - Hypovolaemia [Recovered/Resolved]
  - Haemorrhoids [Unknown]
  - Off label use [Unknown]
  - Gastritis [Recovered/Resolved]
  - Colitis ulcerative [Unknown]
  - Large intestine polyp [Recovered/Resolved]
  - Hypoxia [Unknown]
  - Weight decreased [Recovered/Resolved]

NARRATIVE: CASE EVENT DATE: 20090807
